FAERS Safety Report 23336153 (Version 1)
Quarter: 2023Q4

REPORT INFORMATION
  Report Type: Spontaneous
  Country: US (occurrence: US)
  Receive Date: 20231225
  Receipt Date: 20231225
  Transmission Date: 20240109
  Serious: Yes (Other)
  Sender: FDA-Public Use
  Company Number: US-STRIDES ARCOLAB LIMITED-2023SP018718

PATIENT
  Age: 45 Year
  Sex: Female

DRUGS (6)
  1. LAMIVUDINE [Suspect]
     Active Substance: LAMIVUDINE
     Indication: HIV infection
     Dosage: UNK, (ONE COURSE)
     Route: 065
     Dates: start: 2023
  2. LAMIVUDINE [Suspect]
     Active Substance: LAMIVUDINE
     Dosage: UNK, TAB/CAP (ONE COURSE, TOTAL DAILY DOSE:1)
     Route: 048
     Dates: start: 20231101
  3. TENOFOVIR DISOPROXIL FUMARATE [Suspect]
     Active Substance: TENOFOVIR DISOPROXIL FUMARATE
     Indication: HIV infection
     Dosage: UNK, (ONE COURSE)
     Route: 065
     Dates: start: 2023
  4. TENOFOVIR DISOPROXIL FUMARATE [Suspect]
     Active Substance: TENOFOVIR DISOPROXIL FUMARATE
     Dosage: UNK, TAB/CAP (ONE COURSE, TOTAL DAILY DOSE:1)
     Route: 048
     Dates: start: 20231101
  5. DOLUTEGRAVIR [Suspect]
     Active Substance: DOLUTEGRAVIR
     Indication: HIV infection
     Dosage: UNK, (ONE COURSE)
     Route: 065
     Dates: start: 2023
  6. DOLUTEGRAVIR [Suspect]
     Active Substance: DOLUTEGRAVIR
     Dosage: UNK, TAB/CAP (ONE COURSE, TOTAL DAILY DOSE:1)
     Route: 048
     Dates: start: 20231101

REACTIONS (3)
  - Premature delivery [Unknown]
  - Stillbirth [Unknown]
  - Maternal exposure during pregnancy [Unknown]

NARRATIVE: CASE EVENT DATE: 20230101
